FAERS Safety Report 21169500 (Version 3)
Quarter: 2022Q3

REPORT INFORMATION
  Report Type: Report from Study
  Country: CA (occurrence: CA)
  Receive Date: 20220804
  Receipt Date: 20220908
  Transmission Date: 20221027
  Serious: Yes (Other)
  Sender: FDA-Public Use
  Company Number: CA-ABBVIE-22K-028-4492143-00

PATIENT
  Age: 24 Year
  Sex: Female

DRUGS (1)
  1. RINVOQ [Suspect]
     Active Substance: UPADACITINIB
     Indication: Dermatitis atopic
     Route: 048
     Dates: start: 20220712

REACTIONS (2)
  - Pilonidal disease [Unknown]
  - Bone cyst [Unknown]

NARRATIVE: CASE EVENT DATE: 20220701
